FAERS Safety Report 9121454 (Version 1)
Quarter: 2013Q1

REPORT INFORMATION
  Report Type: Spontaneous
  Country: GB (occurrence: GB)
  Receive Date: 20130227
  Receipt Date: 20130227
  Transmission Date: 20140127
  Serious: Yes (Other)
  Sender: FDA-Public Use
  Company Number: GB-AMGEN-GBRSP2013013335

PATIENT
  Age: 63 Year
  Sex: Male
  Weight: 78.91 kg

DRUGS (4)
  1. ENBREL [Suspect]
     Indication: ANKYLOSING SPONDYLITIS
     Dosage: 50 MG, WEEKLY
     Route: 051
     Dates: start: 20090412, end: 20120701
  2. ATORVASTATIN [Concomitant]
     Dosage: UNK
  3. ENALAPRIL MALEATE [Concomitant]
     Dosage: UNK
  4. BENDROFLUMETHIAZIDE [Concomitant]
     Dosage: UNK

REACTIONS (9)
  - Anxiety [Recovering/Resolving]
  - Withdrawal syndrome [Recovering/Resolving]
  - Dyspnoea [Recovering/Resolving]
  - Skin reaction [Recovering/Resolving]
  - Sleep disorder [Recovering/Resolving]
  - Decreased appetite [Recovering/Resolving]
  - Social problem [Recovering/Resolving]
  - Impaired work ability [Recovering/Resolving]
  - Weight decreased [Unknown]
